FAERS Safety Report 8009198-X (Version None)
Quarter: 2011Q4

REPORT INFORMATION
  Report Type: 
  Country: None (occurrence: None)
  Receive Date: 20111221
  Receipt Date: 20111215
  Transmission Date: 20120403
  Serious: Yes (Hospitalization, Disabling)
  Sender: FDA-Public Use
  Company Number: 2011MA017805

PATIENT
  Age: 46 Year
  Sex: Male

DRUGS (2)
  1. CLOZARIL [Suspect]
     Indication: SCHIZOPHRENIA
     Dosage: 200 MG; PO
     Route: 048
  2. SERTRALINE HYDROCHLORIDE [Suspect]
     Dosage: 50 MG; PO
     Route: 048

REACTIONS (2)
  - FIBULA FRACTURE [None]
  - TIBIA FRACTURE [None]
